FAERS Safety Report 9483300 (Version 2)
Quarter: 2013Q3

REPORT INFORMATION
  Report Type: Spontaneous
  Country: US (occurrence: US)
  Receive Date: 20130828
  Receipt Date: 20130828
  Transmission Date: 20140515
  Serious: Yes (Hospitalization)
  Sender: FDA-Public Use
  Company Number: US-AMGEN-KDL244144

PATIENT
  Age: 37 Year
  Sex: Female

DRUGS (2)
  1. ENBREL [Suspect]
     Indication: RHEUMATOID ARTHRITIS
     Dosage: 50 MG, QWK
     Route: 058
     Dates: start: 20041008, end: 20061114
  2. LEFLUNOMIDE [Concomitant]
     Dosage: 20 MG, QD
     Route: 048
     Dates: start: 2002

REACTIONS (5)
  - Pharyngeal disorder [Unknown]
  - Dysphagia [Unknown]
  - Dyspnoea [Unknown]
  - Throat tightness [Not Recovered/Not Resolved]
  - Infection [Unknown]
